FAERS Safety Report 19286297 (Version 1)
Quarter: 2021Q2

REPORT INFORMATION
  Report Type: Spontaneous
  Country: US (occurrence: US)
  Receive Date: 20210521
  Receipt Date: 20210521
  Transmission Date: 20210717
  Serious: No
  Sender: FDA-Public Use
  Company Number: US-RADIUS HEALTH INC.-2020US002456

PATIENT
  Sex: Female

DRUGS (3)
  1. TYMLOS [Suspect]
     Active Substance: ABALOPARATIDE
     Indication: OSTEOPOROSIS
     Dosage: 80 MCG, EVERY OTHER DAY
     Route: 058
     Dates: start: 20200705
  2. PREDNISONE. [Concomitant]
     Active Substance: PREDNISONE
     Indication: EXPOSURE TO TOXIC AGENT
  3. TYMLOS [Suspect]
     Active Substance: ABALOPARATIDE
     Dosage: 80 MCG, QD
     Route: 058

REACTIONS (8)
  - Insomnia [Recovered/Resolved]
  - Hot flush [Unknown]
  - Pain [Recovered/Resolved]
  - Intentional product misuse [Recovered/Resolved]
  - Nocturia [Unknown]
  - Hyperhidrosis [Recovered/Resolved]
  - Sleep disorder [Unknown]
  - Pollakiuria [Recovered/Resolved]
